FAERS Safety Report 7918049-0 (Version None)
Quarter: 2011Q4

REPORT INFORMATION
  Report Type: 
  Country: None (occurrence: None)
  Receive Date: 20111116
  Receipt Date: 20111115
  Transmission Date: 20120403
  Serious: Yes (Disabling)
  Sender: FDA-Public Use
  Company Number: DE-MERCK-1111DEU00073

PATIENT
  Age: 34 Year
  Sex: Male
  Weight: 110 kg

DRUGS (1)
  1. JANUMET [Suspect]
     Indication: DIABETES MELLITUS
     Route: 048
     Dates: start: 20110725, end: 20110908

REACTIONS (1)
  - ERECTILE DYSFUNCTION [None]
